FAERS Safety Report 9696769 (Version 2)
Quarter: 2013Q4

REPORT INFORMATION
  Report Type: Spontaneous
  Country: US (occurrence: US)
  Receive Date: 20131119
  Receipt Date: 20131119
  Transmission Date: 20140711
  Serious: No
  Sender: FDA-Public Use
  Company Number: US-GILEAD-2007-0014525

PATIENT
  Sex: Female
  Weight: 73.03 kg

DRUGS (7)
  1. LETAIRIS [Suspect]
     Indication: PULMONARY ARTERIAL HYPERTENSION
     Route: 048
     Dates: start: 20071023, end: 20071212
  2. PRINIVIL [Concomitant]
     Route: 048
  3. LASIX [Concomitant]
     Route: 048
  4. COUMADIN [Concomitant]
     Route: 048
  5. LIPITOR [Concomitant]
     Dosage: Q HS
     Route: 048
  6. LANOXIN [Concomitant]
     Route: 048
  7. PROBENECID [Concomitant]
     Route: 048

REACTIONS (2)
  - Local swelling [None]
  - Dyspnoea [None]
